FAERS Safety Report 9212547 (Version 3)
Quarter: 2013Q3

REPORT INFORMATION
  Report Type: Spontaneous
  Country: US (occurrence: US)
  Receive Date: 20130405
  Receipt Date: 20130821
  Transmission Date: 20140515
  Serious: Yes (Hospitalization)
  Sender: FDA-Public Use
  Company Number: US-BIOGENIDEC-2013BI029238

PATIENT
  Age: 61 Year
  Sex: Female

DRUGS (2)
  1. TYSABRI [Suspect]
     Indication: MULTIPLE SCLEROSIS
     Route: 042
     Dates: start: 20090331, end: 20130204
  2. CARDIZEM [Concomitant]
     Indication: PRINZMETAL ANGINA
     Dates: end: 201303

REACTIONS (10)
  - Respiratory arrest [Recovered/Resolved]
  - Atrial fibrillation [Recovered/Resolved]
  - Cardiomegaly [Unknown]
  - Ejection fraction decreased [Unknown]
  - Cardiac failure congestive [Recovered/Resolved]
  - Apnoeic attack [Unknown]
  - Blood potassium decreased [Recovered/Resolved]
  - Blood sodium decreased [Recovered/Resolved]
  - Drug ineffective [Not Recovered/Not Resolved]
  - Clostridium difficile infection [Recovered/Resolved]
